FAERS Safety Report 12006996 (Version 2)
Quarter: 2016Q2

REPORT INFORMATION
  Report Type: Spontaneous
  Country: TW (occurrence: TW)
  Receive Date: 20160204
  Receipt Date: 20160405
  Transmission Date: 20160815
  Serious: Yes (Death, Other)
  Sender: FDA-Public Use
  Company Number: TW-BAYER-2016-012272

PATIENT
  Age: 60 Year
  Sex: Male

DRUGS (1)
  1. CIPROFLOXACIN. [Suspect]
     Active Substance: CIPROFLOXACIN
     Indication: GASTROINTESTINAL INFECTION
     Dosage: UNK

REACTIONS (3)
  - Drug ineffective [None]
  - Acute respiratory failure [Fatal]
  - Bronchospasm [None]
